FAERS Safety Report 19773888 (Version 1)
Quarter: 2021Q3

REPORT INFORMATION
  Report Type: Spontaneous
  Country: US (occurrence: US)
  Receive Date: 20210901
  Receipt Date: 20210901
  Transmission Date: 20211014
  Serious: Yes (Other)
  Sender: FDA-Public Use
  Company Number: US-ASTRAZENECA-2021A698586

PATIENT
  Age: 44 Year
  Sex: Female

DRUGS (2)
  1. TAGRISSO [Suspect]
     Active Substance: OSIMERTINIB
     Indication: NON-SMALL CELL LUNG CANCER METASTATIC
     Route: 048
  2. NIVOLUMAB [Concomitant]
     Active Substance: NIVOLUMAB

REACTIONS (6)
  - Malignant neoplasm progression [Recovering/Resolving]
  - Drug resistance [Unknown]
  - Metastases to liver [Unknown]
  - Acquired gene mutation [Unknown]
  - Metastases to pleura [Recovering/Resolving]
  - Metastases to chest wall [Unknown]
